FAERS Safety Report 7320075-X (Version None)
Quarter: 2011Q1

REPORT INFORMATION
  Report Type: 
  Country: None (occurrence: None)
  Receive Date: 20110228
  Receipt Date: 20110215
  Transmission Date: 20110831
  Serious: Yes (Hospitalization)
  Sender: FDA-Public Use
  Company Number: US-ELI_LILLY_AND_COMPANY-US201006000705

PATIENT
  Sex: Male
  Weight: 75.21 kg

DRUGS (24)
  1. VIBRAMYCIN /00055702/ [Concomitant]
     Indication: DERMATITIS
     Dosage: 100 MG, DAILY (1/D)
     Route: 048
     Dates: start: 20100420
  2. COMPAZINE [Concomitant]
     Indication: NAUSEA
     Dosage: 10 MG, AS NEEDED
     Route: 048
     Dates: start: 20100511
  3. TERAZOSIN HYDROCHLORIDE [Concomitant]
     Indication: PROSTATE CANCER
     Dosage: 2 MG, EACH EVENING
     Route: 048
     Dates: start: 20020101
  4. VITAMIN B-12 [Concomitant]
     Dosage: 1000 MG, OTHER
     Dates: start: 20100323
  5. ZOFRAN [Concomitant]
     Indication: PREMEDICATION
     Dosage: 32 MG, OTHER
     Route: 042
     Dates: start: 20100407
  6. HYCODAN /USA/ [Concomitant]
     Indication: COUGH
     Route: 048
     Dates: start: 20100420
  7. LOTRISONE [Concomitant]
     Indication: DERMATITIS
     Route: 061
     Dates: start: 20100511
  8. MAGNESIUM [Concomitant]
     Dosage: 400 MG, 2/D
     Route: 048
     Dates: start: 20100601
  9. CETUXIMAB [Suspect]
     Indication: NON-SMALL CELL LUNG CANCER
     Dosage: 384 MG, OTHER
     Route: 042
     Dates: start: 20100406, end: 20100518
  10. CARBOPLATIN [Suspect]
     Indication: NON-SMALL CELL LUNG CANCER
     Dosage: 412 MG, OTHER
     Route: 042
     Dates: start: 20100407, end: 20100518
  11. HYDROCHLOROTHIAZIDE [Concomitant]
     Indication: HYPERTENSION
     Dosage: 12.5 MG, DAILY (1/D)
     Route: 048
     Dates: start: 19980101
  12. POTASSIUM CHLORIDE [Concomitant]
     Indication: MEDICAL DIET
     Dosage: 10 MEQ, UNK
     Route: 048
     Dates: start: 20020101
  13. METOPROLOL [Concomitant]
     Indication: HYPERTENSION
     Dosage: 25 MG, DAILY (1/D)
     Route: 048
     Dates: start: 19980101
  14. ASPIRIN [Concomitant]
     Indication: PROPHYLAXIS
     Dosage: 325 MG, OTHER
     Dates: start: 19980101
  15. HYDRALAZINE HCL [Concomitant]
     Indication: CARDIAC DISORDER
     Dosage: 10 MG, 3/D
     Route: 048
     Dates: start: 19980101
  16. FOLIC ACID [Concomitant]
     Indication: PREMEDICATION
     Dosage: 1 MG, OTHER
     Route: 048
     Dates: start: 20100323
  17. MEGACE [Concomitant]
     Indication: INCREASED APPETITE
     Dosage: 1 D/F, DAILY (1/D)
     Route: 048
     Dates: start: 20100511
  18. SALINE [Concomitant]
     Dosage: 500 MG, DAILY (1/D)
     Route: 042
     Dates: start: 20100525, end: 20100525
  19. PEMETREXED [Suspect]
     Indication: NON-SMALL CELL LUNG CANCER
     Dosage: 960 MG, OTHER
     Route: 042
     Dates: start: 20100407, end: 20100518
  20. DEXAMETHASONE [Concomitant]
     Indication: PREMEDICATION
     Dosage: 4 MG, OTHER
     Route: 048
     Dates: start: 20100406
  21. MIRALAX [Concomitant]
     Indication: CONSTIPATION
     Dosage: UNK, AS NEEDED
     Route: 048
     Dates: start: 20100427
  22. SALINE [Concomitant]
     Indication: DEHYDRATION
     Dosage: 1 LITER, OTHER
     Route: 042
     Dates: start: 20100511, end: 20100511
  23. SIMVASTATIN [Concomitant]
     Indication: HYPERCHOLESTEROLAEMIA
     Dosage: 40 MG, EACH EVENING
     Route: 048
     Dates: start: 19990101
  24. MAGNESIUM [Concomitant]
     Indication: MEDICAL DIET
     Dosage: 400 MG, DAILY (1/D)
     Route: 048
     Dates: start: 20100525, end: 20100525

REACTIONS (12)
  - DEHYDRATION [None]
  - DUODENAL ULCER [None]
  - DYSPNOEA [None]
  - PROCTALGIA [None]
  - GASTRIC ULCER [None]
  - GASTROINTESTINAL HAEMORRHAGE [None]
  - PLATELET COUNT DECREASED [None]
  - INTESTINAL ULCER [None]
  - CONSTIPATION [None]
  - SOMNOLENCE [None]
  - ANAEMIA [None]
  - RENAL FAILURE [None]
